FAERS Safety Report 11777337 (Version 1)
Quarter: 2015Q4

REPORT INFORMATION
  Report Type: Spontaneous
  Country: US (occurrence: US)
  Receive Date: 20151125
  Receipt Date: 20151125
  Transmission Date: 20160304
  Serious: No
  Sender: FDA-Public Use
  Company Number: US-MALLINCKRODT-T201503112

PATIENT
  Sex: Female

DRUGS (8)
  1. CELEXA [Concomitant]
     Active Substance: CITALOPRAM HYDROBROMIDE
  2. VALIUM [Concomitant]
     Active Substance: DIAZEPAM
     Dosage: PRN
  3. GABLOFEN [Suspect]
     Active Substance: BACLOFEN
     Dosage: 2000 MCG/ML; 433 MCG/DAY
     Route: 037
     Dates: start: 2015
  4. BACLOFEN. [Concomitant]
     Active Substance: BACLOFEN
     Route: 048
  5. AMPYRA [Concomitant]
     Active Substance: DALFAMPRIDINE
  6. GABLOFEN [Suspect]
     Active Substance: BACLOFEN
     Indication: MUSCLE SPASTICITY
     Dosage: 500 MCG/ML; 143.11 MCG/DAY
     Route: 037
     Dates: start: 20150514
  7. GABLOFEN [Suspect]
     Active Substance: BACLOFEN
     Dosage: 2000 MCG/ML; 225.3 MCG/DAY
     Route: 037
  8. GILENYA [Concomitant]
     Active Substance: FINGOLIMOD HYDROCHLORIDE

REACTIONS (3)
  - Implant site extravasation [Unknown]
  - Drug ineffective [Not Recovered/Not Resolved]
  - Device issue [Recovered/Resolved]
